FAERS Safety Report 8965715 (Version 3)
Quarter: 2013Q2

REPORT INFORMATION
  Report Type: Spontaneous
  Country: US (occurrence: None)
  Receive Date: 20121206
  Receipt Date: 20130531
  Transmission Date: 20140414
  Serious: Yes (Hospitalization, Other)
  Sender: FDA-Public Use
  Company Number: JPI-P-026497

PATIENT
  Age: 41 Year
  Sex: Male

DRUGS (1)
  1. XYREM (500 MILLIGRAM/ MILLILITERS, SOLUTION) (SODIUM OXYBATE) [Suspect]
     Indication: INSOMNIA
     Dosage: 6 GM (3 GM,2 IN 1 D)
     Route: 048
     Dates: start: 20110830

REACTIONS (15)
  - Ulcer [None]
  - Precancerous cells present [None]
  - Attention deficit/hyperactivity disorder [None]
  - Incorrect dose administered [None]
  - Abnormal behaviour [None]
  - Anxiety [None]
  - Self-injurious ideation [None]
  - Disturbance in attention [None]
  - Somnolence [None]
  - Delusion [None]
  - Bipolar disorder [None]
  - Mania [None]
  - Anger [None]
  - Mood altered [None]
  - Hostility [None]
